FAERS Safety Report 11714441 (Version 6)
Quarter: 2016Q3

REPORT INFORMATION
  Report Type: Spontaneous
  Country: US (occurrence: US)
  Receive Date: 20151109
  Receipt Date: 20160919
  Transmission Date: 20161109
  Serious: Yes (Other)
  Sender: FDA-Public Use
  Company Number: PHEH2015US022669

PATIENT
  Age: 26 Year
  Sex: Female
  Weight: 50.79 kg

DRUGS (3)
  1. ZOFRAN [Suspect]
     Active Substance: ONDANSETRON HYDROCHLORIDE
     Indication: VOMITING IN PREGNANCY
     Route: 048
  2. ONDANSETRON HYDROCHLORIDE. [Suspect]
     Active Substance: ONDANSETRON HYDROCHLORIDE
     Indication: PRODUCT USED FOR UNKNOWN INDICATION
     Dosage: 4 TO 8 MG, UNK
     Route: 048
  3. ONDANSETRON. [Suspect]
     Active Substance: ONDANSETRON
     Indication: VOMITING IN PREGNANCY
     Dosage: 4 MG TO 8 MG, UNK
     Route: 065
     Dates: start: 201406, end: 201411

REACTIONS (10)
  - Emotional distress [Unknown]
  - Malaise [Unknown]
  - Product use issue [Unknown]
  - Stillbirth [Unknown]
  - Urinary tract infection [Unknown]
  - Vulvovaginal candidiasis [Unknown]
  - Anxiety [Unknown]
  - Injury [Unknown]
  - Maternal exposure during pregnancy [Unknown]
  - Pain [Unknown]

NARRATIVE: CASE EVENT DATE: 20141105
